FAERS Safety Report 6084872-3 (Version None)
Quarter: 2009Q1

REPORT INFORMATION
  Report Type: 
  Country: None (occurrence: None)
  Receive Date: 20090220
  Receipt Date: 20090212
  Transmission Date: 20090719
  Serious: Yes (Other)
  Sender: FDA-Public Use
  Company Number: CA-RANBAXY-2009RR-21809

PATIENT
  Age: 21 Year
  Sex: Male

DRUGS (11)
  1. ACETAMINOPHEN [Suspect]
  2. CYTARABINE [Concomitant]
     Dosage: 2.3 MG, UNK
     Route: 042
  3. DAUNORUBICIN HCL [Concomitant]
     Dosage: 68 MG, UNK
  4. GENTAMICIN [Concomitant]
     Indication: PYREXIA
  5. GENTAMICIN [Concomitant]
     Indication: NEUTROPENIA
  6. CEFTAZIDIME [Concomitant]
     Indication: PYREXIA
  7. CEFTAZIDIME [Concomitant]
     Indication: NEUTROPENIA
  8. VANCOMYCIN [Concomitant]
     Indication: PYREXIA
  9. AMPHOTERICIN B [Concomitant]
  10. MORPHINE [Concomitant]
     Indication: SEDATION
  11. LORAZEPAM [Concomitant]
     Indication: SEDATION

REACTIONS (2)
  - ANAPHYLACTIC REACTION [None]
  - HYPOTENSION [None]
